FAERS Safety Report 10103100 (Version 2)
Quarter: 2014Q2

REPORT INFORMATION
  Report Type: Spontaneous
  Country: JP (occurrence: JP)
  Receive Date: 20140424
  Receipt Date: 20140521
  Transmission Date: 20141212
  Serious: Yes (Life-Threatening)
  Sender: FDA-Public Use
  Company Number: JP-BAYER-2014-055968

PATIENT
  Age: 83 Year
  Sex: Male
  Weight: 48 kg

DRUGS (2)
  1. CIPROXAN-I.V.300 [Suspect]
     Indication: ATYPICAL PNEUMONIA
     Dosage: 300 MG, BID
     Route: 041
     Dates: start: 20140408, end: 20140413
  2. CIPROXAN-I.V.300 [Suspect]
     Indication: PNEUMONIA MYCOPLASMAL

REACTIONS (2)
  - Altered state of consciousness [Not Recovered/Not Resolved]
  - Convulsion [Recovered/Resolved]
